FAERS Safety Report 4623131-X (Version None)
Quarter: 2005Q1

REPORT INFORMATION
  Report Type: 
  Country: None (occurrence: None)
  Receive Date: 20050328
  Receipt Date: 20050328
  Transmission Date: 20050727
  Serious: Yes (Hospitalization)
  Sender: FDA-Public Use
  Company Number: None

PATIENT
  Age: 66 Year
  Sex: Female
  Weight: 62.7 kg

DRUGS (14)
  1. GEMZAR [Suspect]
     Indication: PANCREATIC CARCINOMA
     Dosage: 750MG/M2 IV WEEKLY X7 WITH 1 WK OFF @ WK 8 CYCLES 1
     Route: 042
     Dates: start: 20050215
  2. GEMZAR [Suspect]
     Indication: PANCREATIC CARCINOMA
     Dosage: 750MG/M2 IV WEEKLY X7 WITH 1 WK OFF @ WK 8 CYCLES 1
     Route: 042
     Dates: start: 20050222
  3. GEMZAR [Suspect]
     Indication: PANCREATIC CARCINOMA
     Dosage: 750MG/M2 IV WEEKLY X7 WITH 1 WK OFF @ WK 8 CYCLES 1
     Route: 042
     Dates: start: 20050301
  4. GEMZAR [Suspect]
     Indication: PANCREATIC CARCINOMA
     Dosage: 750MG/M2 IV WEEKLY X7 WITH 1 WK OFF @ WK 8 CYCLES 1
     Route: 042
     Dates: start: 20050308
  5. GEMZAR [Suspect]
     Indication: PANCREATIC CARCINOMA
     Dosage: 750MG/M2 IV WEEKLY X7 WITH 1 WK OFF @ WK 8 CYCLES 1
     Route: 042
     Dates: start: 20050315
  6. GEMZAR [Suspect]
     Indication: PANCREATIC CARCINOMA
     Dosage: 750MG/M2 IV WEEKLY X7 WITH 1 WK OFF @ WK 8 CYCLES 1
     Route: 042
     Dates: start: 20050322
  7. DURAGESIC-100 [Concomitant]
  8. MS CONTIN [Concomitant]
  9. PROTONIX [Concomitant]
  10. DIOVAN HCT [Concomitant]
  11. HYDROCHLOROTHIAZIDE [Concomitant]
  12. METOPROLOL TARTRATE [Concomitant]
  13. VALSARTAN [Concomitant]
  14. TPN [Concomitant]

REACTIONS (3)
  - BACK PAIN [None]
  - CHEST PAIN [None]
  - LUNG INFILTRATION [None]
